FAERS Safety Report 6244924-1 (Version None)
Quarter: 2009Q2

REPORT INFORMATION
  Report Type: 
  Country: None (occurrence: None)
  Receive Date: 20090625
  Receipt Date: 20090615
  Transmission Date: 20091009
  Serious: Yes (Hospitalization)
  Sender: FDA-Public Use
  Company Number: PHHY2009BR23549

PATIENT
  Age: 35 Year
  Sex: Female

DRUGS (9)
  1. OXYTOCIN [Suspect]
     Dosage: 5 U, UNK
  2. OXYTOCIN [Suspect]
     Dosage: 15 IU, UNK
  3. RINGER'S [Concomitant]
  4. CEPHALOTHIN [Concomitant]
     Dosage: 1 G, UNK
  5. ERGOTRATE [Concomitant]
     Route: 042
  6. SODIUM CHLORIDE [Concomitant]
     Dosage: 500 ML, UNK
  7. BUPIVACAINE [Concomitant]
  8. FENTANYL [Concomitant]
     Dosage: 20 UG, UNK
  9. OXYGEN [Concomitant]

REACTIONS (29)
  - ACTIVATED PARTIAL THROMBOPLASTIN TIME PROLONGED [None]
  - AGITATION [None]
  - ANAPHYLACTIC SHOCK [None]
  - BLOOD PRESSURE IMMEASURABLE [None]
  - DISSEMINATED INTRAVASCULAR COAGULATION [None]
  - DYSPNOEA [None]
  - HAEMATOCRIT DECREASED [None]
  - HAEMOGLOBIN DECREASED [None]
  - HYPERHIDROSIS [None]
  - HYPERSENSITIVITY [None]
  - HYPOTENSION [None]
  - HYPOTONIA [None]
  - HYPOVOLAEMIC SHOCK [None]
  - INTERNATIONAL NORMALISED RATIO INCREASED [None]
  - LEFT VENTRICULAR HYPERTROPHY [None]
  - LOSS OF CONSCIOUSNESS [None]
  - NAUSEA [None]
  - OXYGEN SATURATION DECREASED [None]
  - PALLOR [None]
  - PLEURAL EFFUSION [None]
  - PROTHROMBIN TIME PROLONGED [None]
  - PRURITUS [None]
  - SEPTIC SHOCK [None]
  - TACHYCARDIA [None]
  - TACHYPNOEA [None]
  - UTERINE ATONY [None]
  - UTERINE HAEMORRHAGE [None]
  - VOMITING [None]
  - WHITE BLOOD CELL DISORDER [None]
